FAERS Safety Report 18285241 (Version 1)
Quarter: 2020Q3

REPORT INFORMATION
  Report Type: Spontaneous
  Country: EG (occurrence: EG)
  Receive Date: 20200918
  Receipt Date: 20200918
  Transmission Date: 20201103
  Serious: Yes (Disabling)
  Sender: FDA-Public Use
  Company Number: EG-NOVOPROD-753114

PATIENT
  Age: 744 Month
  Sex: Female
  Weight: 70 kg

DRUGS (5)
  1. MARIVANIL [Concomitant]
     Indication: HAEMOPHILIA
     Dosage: 1 /NIGHT,START DATE :5 OR 5 AND HALF YEARS
     Route: 048
  2. LANOXIN [Concomitant]
     Active Substance: DIGOXIN
     Indication: CARDIAC DISORDER
     Dosage: 1 /DAY , START DATE : 4 YEARS
     Route: 048
  3. ELTROXIN [Concomitant]
     Active Substance: LEVOTHYROXINE
     Indication: THYROID DISORDER
     Dosage: 1 MORNING AND 1 NIGHT , START DATE : 3 YEARS
     Route: 048
  4. MARIVANIL [Concomitant]
     Indication: HAEMOPHILIA
     Dosage: 1/NIGHT ,START DATE :5 OR 5 AND HALF YEARS
     Route: 048
  5. MIXTARD 30 HM PENFILL [Suspect]
     Active Substance: INSULIN HUMAN
     Indication: DIABETES MELLITUS
     Dosage: 30 IU, BID  (30 IU MORNING AND 30 IU NIGHT), FROM 2?3 YEARS
     Route: 058

REACTIONS (4)
  - Eye allergy [Not Recovered/Not Resolved]
  - Foot fracture [Not Recovered/Not Resolved]
  - Cyst [Not Recovered/Not Resolved]
  - Visual impairment [Not Recovered/Not Resolved]

NARRATIVE: CASE EVENT DATE: 20200816
